FAERS Safety Report 18016558 (Version 1)
Quarter: 2020Q3

REPORT INFORMATION
  Report Type: Spontaneous
  Country: FR (occurrence: FR)
  Receive Date: 20200713
  Receipt Date: 20200713
  Transmission Date: 20201103
  Serious: Yes (Hospitalization, Other)
  Sender: FDA-Public Use
  Company Number: FR-SA-2020SA177092

PATIENT

DRUGS (13)
  1. BUDESONIDE. [Concomitant]
     Active Substance: BUDESONIDE
  2. SALBUTAMOL [Concomitant]
     Active Substance: ALBUTEROL
  3. CHOLECALCIFEROL [Concomitant]
     Active Substance: CHOLECALCIFEROL
  4. FUMAFER [Concomitant]
     Active Substance: FERROUS FUMARATE
  5. APROVEL [Suspect]
     Active Substance: IRBESARTAN
     Indication: HYPERTENSION
     Dosage: 150 MG, QD
     Route: 048
     Dates: start: 20200611
  6. METOPIRONE [Suspect]
     Active Substance: METYRAPONE
     Indication: PITUITARY-DEPENDENT CUSHING^S SYNDROME
     Dosage: 500 MG, QD
     Route: 048
     Dates: start: 20200612, end: 20200620
  7. VICTOZA [Concomitant]
     Active Substance: LIRAGLUTIDE
  8. NOVORAPID [Concomitant]
     Active Substance: INSULIN ASPART
  9. ATORVASTATIN [Suspect]
     Active Substance: ATORVASTATIN
     Indication: DYSLIPIDAEMIA
     Dosage: 80 MG, QD
     Route: 048
     Dates: start: 20200611
  10. ALLOPURINOL. [Concomitant]
     Active Substance: ALLOPURINOL
  11. PARACETAMOL [Concomitant]
     Active Substance: ACETAMINOPHEN
  12. TRESIBA [Concomitant]
     Active Substance: INSULIN DEGLUDEC
  13. PREGABALINE [Concomitant]
     Active Substance: PREGABALIN

REACTIONS (2)
  - Hepatitis [Not Recovered/Not Resolved]
  - Hepatic encephalopathy [Not Recovered/Not Resolved]

NARRATIVE: CASE EVENT DATE: 20200619
